FAERS Safety Report 5405554-4 (Version None)
Quarter: 2007Q3

REPORT INFORMATION
  Report Type: 
  Country: None (occurrence: None)
  Receive Date: 20070803
  Receipt Date: 20070723
  Transmission Date: 20080115
  Serious: Yes (Other)
  Sender: FDA-Public Use
  Company Number: US-PFIZER INC-2007062165

PATIENT
  Sex: Female
  Weight: 86.2 kg

DRUGS (12)
  1. SUTENT [Suspect]
     Indication: RENAL CELL CARCINOMA STAGE UNSPECIFIED
     Dates: start: 20070419, end: 20070716
  2. CYMBALTA [Concomitant]
  3. LASIX [Concomitant]
  4. POTASSIUM CHLORIDE [Concomitant]
  5. ZANTAC 150 [Concomitant]
  6. HYDROCORTISONE [Concomitant]
  7. DARVOCET [Concomitant]
  8. CLONIDINE [Concomitant]
  9. PROMETHAZINE [Concomitant]
  10. COMPAZINE [Concomitant]
  11. XANAX [Concomitant]
  12. DOXAZOSIN MESYLATE [Concomitant]

REACTIONS (1)
  - BLOOD THYROID STIMULATING HORMONE DECREASED [None]
